FAERS Safety Report 18213350 (Version 6)
Quarter: 2022Q1

REPORT INFORMATION
  Report Type: Report from Study
  Country: DE (occurrence: DE)
  Receive Date: 20200831
  Receipt Date: 20220322
  Transmission Date: 20220423
  Serious: Yes (Death, Hospitalization, Other)
  Sender: FDA-Public Use
  Company Number: DE-JNJFOC-20200728815

PATIENT
  Sex: Male
  Weight: 93 kg

DRUGS (2)
  1. TRABECTEDIN [Suspect]
     Active Substance: TRABECTEDIN
     Indication: Spindle cell sarcoma
     Dosage: CYCLE 1 DAY 1
     Route: 042
     Dates: start: 20200714
  2. NIVOLUMAB [Suspect]
     Active Substance: NIVOLUMAB
     Indication: Spindle cell sarcoma
     Dosage: CYCLE 1
     Route: 065
     Dates: start: 20200804, end: 20200804

REACTIONS (8)
  - Drug-induced liver injury [Not Recovered/Not Resolved]
  - Neutropenic sepsis [Fatal]
  - Rhabdomyolysis [Fatal]
  - Acute kidney injury [Fatal]
  - Pyrexia [Recovered/Resolved]
  - Alanine aminotransferase increased [Recovered/Resolved]
  - Aspartate aminotransferase increased [Recovered/Resolved]
  - Aspartate aminotransferase increased [Not Recovered/Not Resolved]

NARRATIVE: CASE EVENT DATE: 20200716
